FAERS Safety Report 22608415 (Version 1)
Quarter: 2023Q2

REPORT INFORMATION
  Report Type: Spontaneous
  Country: JP (occurrence: JP)
  Receive Date: 20230616
  Receipt Date: 20230616
  Transmission Date: 20230721
  Serious: Yes (Hospitalization, Other)
  Sender: FDA-Public Use
  Company Number: JP-JNJFOC-20201230526

PATIENT
  Age: 64 Year
  Sex: Male
  Weight: 56 kg

DRUGS (48)
  1. OPSUMIT [Suspect]
     Active Substance: MACITENTAN
     Indication: Pulmonary arterial hypertension
     Route: 048
     Dates: start: 20190221
  2. SELEXIPAG [Suspect]
     Active Substance: SELEXIPAG
     Indication: Pulmonary arterial hypertension
     Route: 048
     Dates: start: 20190228
  3. SELEXIPAG [Suspect]
     Active Substance: SELEXIPAG
     Route: 048
     Dates: start: 20190307
  4. SELEXIPAG [Suspect]
     Active Substance: SELEXIPAG
     Route: 048
     Dates: start: 20190314
  5. SELEXIPAG [Suspect]
     Active Substance: SELEXIPAG
     Route: 048
     Dates: start: 20190708
  6. SELEXIPAG [Suspect]
     Active Substance: SELEXIPAG
     Route: 048
     Dates: start: 20200117
  7. PREDONINE [Suspect]
     Active Substance: PREDNISOLONE
     Indication: Systemic lupus erythematosus
     Route: 048
     Dates: start: 20190124, end: 20190410
  8. PREDONINE [Suspect]
     Active Substance: PREDNISOLONE
     Route: 048
     Dates: start: 20190411, end: 20190411
  9. PREDONINE [Suspect]
     Active Substance: PREDNISOLONE
     Route: 048
     Dates: start: 20190412, end: 20190424
  10. PREDONINE [Suspect]
     Active Substance: PREDNISOLONE
     Route: 048
     Dates: start: 20190425, end: 20190508
  11. PREDONINE [Suspect]
     Active Substance: PREDNISOLONE
     Route: 048
     Dates: start: 20190509, end: 20190514
  12. PREDONINE [Suspect]
     Active Substance: PREDNISOLONE
     Route: 048
     Dates: start: 20190515, end: 20190519
  13. PREDONINE [Suspect]
     Active Substance: PREDNISOLONE
     Route: 048
     Dates: start: 20190520, end: 20190618
  14. PREDONINE [Suspect]
     Active Substance: PREDNISOLONE
     Route: 048
     Dates: start: 20190619, end: 20190707
  15. PREDONINE [Suspect]
     Active Substance: PREDNISOLONE
     Route: 048
     Dates: start: 20190708, end: 20190815
  16. PREDONINE [Suspect]
     Active Substance: PREDNISOLONE
     Route: 048
     Dates: start: 20190816, end: 20191024
  17. PREDONINE [Suspect]
     Active Substance: PREDNISOLONE
     Route: 048
     Dates: start: 20191025, end: 20200130
  18. PREDONINE [Suspect]
     Active Substance: PREDNISOLONE
     Route: 048
     Dates: start: 20200131, end: 20200407
  19. PREDONINE [Suspect]
     Active Substance: PREDNISOLONE
     Route: 048
     Dates: start: 20200408, end: 20200514
  20. PREDONINE [Suspect]
     Active Substance: PREDNISOLONE
     Route: 048
     Dates: start: 20200515, end: 20200702
  21. PREDONINE [Suspect]
     Active Substance: PREDNISOLONE
     Route: 048
     Dates: start: 20200703, end: 20201001
  22. PREDONINE [Suspect]
     Active Substance: PREDNISOLONE
     Route: 048
     Dates: start: 20201002, end: 20201105
  23. PREDONINE [Suspect]
     Active Substance: PREDNISOLONE
     Route: 048
     Dates: start: 20201106, end: 20201201
  24. PREDONINE [Suspect]
     Active Substance: PREDNISOLONE
     Route: 048
     Dates: start: 20201202, end: 20201227
  25. PREDONINE [Suspect]
     Active Substance: PREDNISOLONE
     Route: 048
     Dates: start: 20201228, end: 20210119
  26. PREDONINE [Suspect]
     Active Substance: PREDNISOLONE
     Route: 048
     Dates: start: 20210120, end: 20210209
  27. PREDONINE [Suspect]
     Active Substance: PREDNISOLONE
     Route: 048
     Dates: start: 20210210, end: 20210316
  28. PREDONINE [Suspect]
     Active Substance: PREDNISOLONE
     Route: 048
     Dates: start: 20210317, end: 20210422
  29. PREDONINE [Suspect]
     Active Substance: PREDNISOLONE
     Route: 048
     Dates: start: 20210422, end: 20210805
  30. PREDONINE [Suspect]
     Active Substance: PREDNISOLONE
     Route: 048
     Dates: start: 20210806
  31. ELIQUIS [Suspect]
     Active Substance: APIXABAN
     Indication: Pulmonary embolism
     Route: 065
     Dates: start: 20200703
  32. HYDROXYCHLOROQUINE DIPHOSPHATE [Concomitant]
     Active Substance: HYDROXYCHLOROQUINE DIPHOSPHATE
     Indication: Systemic lupus erythematosus
     Route: 065
     Dates: start: 20190107, end: 20190206
  33. HYDROXYCHLOROQUINE DIPHOSPHATE [Concomitant]
     Active Substance: HYDROXYCHLOROQUINE DIPHOSPHATE
     Dates: start: 20190207, end: 20190313
  34. HYDROXYCHLOROQUINE DIPHOSPHATE [Concomitant]
     Active Substance: HYDROXYCHLOROQUINE DIPHOSPHATE
     Dates: start: 20190314
  35. ADCIRCA [Concomitant]
     Active Substance: TADALAFIL
     Indication: Pulmonary arterial hypertension
     Route: 048
     Dates: start: 20190207
  36. AZOSEMIDE [Concomitant]
     Active Substance: AZOSEMIDE
     Dates: start: 20190228, end: 20190306
  37. AZOSEMIDE [Concomitant]
     Active Substance: AZOSEMIDE
     Dates: start: 20200213
  38. SULFAMETHOXAZOLE\TRIMETHOPRIM [Concomitant]
     Active Substance: SULFAMETHOXAZOLE\TRIMETHOPRIM
     Indication: Prophylaxis
     Dates: start: 20190124
  39. BONALON [Concomitant]
     Active Substance: ALENDRONATE SODIUM
     Indication: Prophylaxis
     Dates: start: 20190124
  40. LANSOPRAZOLE [Concomitant]
     Active Substance: LANSOPRAZOLE
     Indication: Prophylaxis
     Dates: start: 20190214, end: 20210313
  41. LANSOPRAZOLE [Concomitant]
     Active Substance: LANSOPRAZOLE
     Dates: start: 20210528
  42. CELLCEPT [Concomitant]
     Active Substance: MYCOPHENOLATE MOFETIL
     Indication: Systemic lupus erythematosus
     Dates: start: 20201106, end: 20201106
  43. CELLCEPT [Concomitant]
     Active Substance: MYCOPHENOLATE MOFETIL
     Dates: start: 20201116, end: 20201201
  44. CELLCEPT [Concomitant]
     Active Substance: MYCOPHENOLATE MOFETIL
     Dates: start: 20201202, end: 20201209
  45. CELLCEPT [Concomitant]
     Active Substance: MYCOPHENOLATE MOFETIL
     Dates: start: 20201210
  46. REBAMIPIDE [Concomitant]
     Active Substance: REBAMIPIDE
     Indication: Prophylaxis
     Dates: start: 20210316, end: 20210803
  47. SUCRALFATE [Concomitant]
     Active Substance: SUCRALFATE
     Dates: start: 20210311, end: 20210316
  48. VONOPRAZAN FUMARATE [Concomitant]
     Active Substance: VONOPRAZAN FUMARATE
     Dates: start: 20210314, end: 20210527

REACTIONS (11)
  - Gastric cancer [Recovered/Resolved]
  - Pneumonia [Recovering/Resolving]
  - Steroid diabetes [Recovered/Resolved]
  - Pulmonary embolism [Not Recovered/Not Resolved]
  - Diarrhoea [Recovering/Resolving]
  - Oral candidiasis [Recovered/Resolved]
  - Nausea [Recovered/Resolved]
  - Hypertension [Not Recovered/Not Resolved]
  - Iron deficiency anaemia [Recovered/Resolved]
  - Abdominal discomfort [Recovered/Resolved]
  - Neck pain [Recovered/Resolved]

NARRATIVE: CASE EVENT DATE: 20190315
